FAERS Safety Report 6480166-2 (Version None)
Quarter: 2009Q4

REPORT INFORMATION
  Report Type: 
  Country: None (occurrence: None)
  Receive Date: 20091208
  Receipt Date: 20091127
  Transmission Date: 20100525
  Serious: Yes (Other)
  Sender: FDA-Public Use
  Company Number: FR-NOVOPROD-289007

PATIENT

DRUGS (2)
  1. NOVOSEVEN [Suspect]
     Indication: INHIBITING ANTIBODIES
     Dosage: 24 MG, QD
     Route: 042
     Dates: start: 20090426
  2. NOVOSEVEN [Suspect]
     Dosage: 60 MG, QD
     Route: 042
     Dates: start: 20090426

REACTIONS (1)
  - RESPIRATORY DISTRESS [None]
